FAERS Safety Report 13239693 (Version 1)
Quarter: 2017Q1

REPORT INFORMATION
  Report Type: Spontaneous
  Country: US (occurrence: US)
  Receive Date: 20170216
  Receipt Date: 20170216
  Transmission Date: 20170428
  Serious: Yes (Death)
  Sender: FDA-Public Use
  Company Number: US-ASTELLAS-2017US006015

PATIENT
  Sex: Female

DRUGS (1)
  1. TARCEVA [Suspect]
     Active Substance: ERLOTINIB HYDROCHLORIDE
     Indication: ILL-DEFINED DISORDER
     Dosage: 150 MG (ONE TABLET), UNKNOWN FREQ.
     Route: 048
     Dates: start: 20160422

REACTIONS (1)
  - Death [Fatal]
